FAERS Safety Report 4870638-6 (Version None)
Quarter: 2005Q4

REPORT INFORMATION
  Report Type: 
  Country: None (occurrence: None)
  Receive Date: 20051228
  Receipt Date: 20051209
  Transmission Date: 20060501
  Serious: Yes (Other)
  Sender: FDA-Public Use
  Company Number: USA0510109709

PATIENT
  Age: 15 Year
  Sex: Male
  Weight: 55.3 kg

DRUGS (1)
  1. STRATTERA [Suspect]
     Indication: ATTENTION DEFICIT/HYPERACTIVITY DISORDER
     Dosage: 80 MG, DAILY (1/D), ORAL
     Route: 048
     Dates: start: 20030527, end: 20050930

REACTIONS (3)
  - LOSS OF CONSCIOUSNESS [None]
  - SUICIDE ATTEMPT [None]
  - TUBERCULIN TEST POSITIVE [None]
